FAERS Safety Report 9392643 (Version 1)
Quarter: 2013Q3

REPORT INFORMATION
  Report Type: Spontaneous
  Country: US (occurrence: None)
  Receive Date: 20130708
  Receipt Date: 20130708
  Transmission Date: 20140515
  Serious: Yes (Other)
  Sender: FDA-Public Use
  Company Number: None

PATIENT
  Age: 50 Year
  Sex: Female

DRUGS (1)
  1. LEVOFLOXACIN [Suspect]
     Indication: SINUSITIS
     Dosage: 7
     Route: 048
     Dates: start: 20130605, end: 20130609

REACTIONS (8)
  - Headache [None]
  - Tremor [None]
  - Dizziness [None]
  - Dizziness [None]
  - Myalgia [None]
  - Asthenia [None]
  - Mental impairment [None]
  - Paraesthesia [None]
